FAERS Safety Report 9892223 (Version 3)
Quarter: 2014Q2

REPORT INFORMATION
  Report Type: Report from Study
  Country: US (occurrence: US)
  Receive Date: 20140212
  Receipt Date: 20140402
  Transmission Date: 20141212
  Serious: Yes (Other)
  Sender: FDA-Public Use
  Company Number: US-JNJFOC-20140202842

PATIENT
  Sex: Male
  Weight: 82.56 kg

DRUGS (4)
  1. REMICADE [Suspect]
     Indication: CROHN^S DISEASE
     Route: 042
     Dates: start: 201308, end: 201401
  2. REMICADE [Suspect]
     Indication: CROHN^S DISEASE
     Route: 042
     Dates: start: 2012, end: 201308
  3. METHOTREXATE [Suspect]
     Indication: CROHN^S DISEASE
     Route: 065
     Dates: end: 201401
  4. TRAMADOL [Suspect]
     Indication: PAIN
     Route: 065
     Dates: start: 2013

REACTIONS (4)
  - Osteoarthritis [Not Recovered/Not Resolved]
  - Liver disorder [Not Recovered/Not Resolved]
  - Arthritis [Not Recovered/Not Resolved]
  - Crohn^s disease [Not Recovered/Not Resolved]
